FAERS Safety Report 7736999-5 (Version None)
Quarter: 2011Q3

REPORT INFORMATION
  Report Type: 
  Country: None (occurrence: None)
  Receive Date: 20110908
  Receipt Date: 20110826
  Transmission Date: 20111222
  Serious: Yes (Hospitalization)
  Sender: FDA-Public Use
  Company Number: US-ELI_LILLY_AND_COMPANY-US201105003042

PATIENT
  Sex: Female

DRUGS (2)
  1. FORTEO [Suspect]
     Indication: OSTEOPOROSIS
     Dosage: 20 UG, QD
     Route: 065
     Dates: start: 20100823
  2. FORTEO [Suspect]
     Dosage: 20 UG, QD

REACTIONS (7)
  - CONTUSION [None]
  - INJECTION SITE HAEMATOMA [None]
  - RESPIRATORY TRACT INFECTION [None]
  - BLOOD SODIUM DECREASED [None]
  - INJECTION SITE PAIN [None]
  - BACK PAIN [None]
  - DRUG DOSE OMISSION [None]
